FAERS Safety Report 11540398 (Version 1)
Quarter: 2015Q3

REPORT INFORMATION
  Report Type: Spontaneous
  Country: US (occurrence: US)
  Receive Date: 20150923
  Receipt Date: 20150923
  Transmission Date: 20151125
  Serious: No
  Sender: FDA-Public Use
  Company Number: US-BEH-2014045380

PATIENT
  Age: 58 Year
  Sex: Female
  Weight: 96 kg

DRUGS (9)
  1. NYSTATIN OINTMENT [Concomitant]
  2. LMX [Concomitant]
     Active Substance: LIDOCAINE
  3. PRIVIGEN [Suspect]
     Active Substance: HUMAN IMMUNOGLOBULIN G
     Indication: POLYNEUROPATHY
     Dosage: ONCE EVERY 2 WEEKS FOR 2 DOSES, THEN 1 TIME MONTHLY FOR 2 MONTHS, THEN STOP
     Route: 042
     Dates: start: 20140925
  4. SODIUM CHLORIDE. [Concomitant]
     Active Substance: SODIUM CHLORIDE
  5. GABAPENTIN. [Concomitant]
     Active Substance: GABAPENTIN
  6. EPIPEN [Concomitant]
     Active Substance: EPINEPHRINE
  7. CORTISONE CREAM [Concomitant]
  8. ACETAMINOPHEN. [Concomitant]
     Active Substance: ACETAMINOPHEN
  9. DIPHENHYDRAMINE. [Concomitant]
     Active Substance: DIPHENHYDRAMINE

REACTIONS (1)
  - Feeling cold [Recovered/Resolved]

NARRATIVE: CASE EVENT DATE: 20140925
